FAERS Safety Report 4907724-8 (Version None)
Quarter: 2006Q1

REPORT INFORMATION
  Report Type: 
  Country: None (occurrence: None)
  Receive Date: 20060208
  Receipt Date: 20060208
  Transmission Date: 20060701
  Serious: Yes (Hospitalization)
  Sender: FDA-Public Use
  Company Number: None

PATIENT
  Age: 84 Year
  Sex: Male

DRUGS (8)
  1. FUROSEMIDE [Suspect]
     Indication: HYPERTENSION
     Dosage: 20MG BID
     Dates: start: 20000201
  2. SPIRONOLACTONE [Suspect]
     Indication: HYPERTENSION
     Dosage: 25MG QD
     Dates: start: 20051101
  3. AMIODARONE HCL [Concomitant]
  4. METOPROLOL [Concomitant]
  5. LISINOPRIL [Concomitant]
  6. ZOCOR [Concomitant]
  7. SERTRALINE [Concomitant]
  8. WARFARIN [Concomitant]

REACTIONS (3)
  - FALL [None]
  - HYPOTENSION [None]
  - UNEVALUABLE EVENT [None]
